FAERS Safety Report 24406763 (Version 3)
Quarter: 2024Q4

REPORT INFORMATION
  Report Type: Spontaneous
  Country: US (occurrence: US)
  Receive Date: 20241007
  Receipt Date: 20241106
  Transmission Date: 20250114
  Serious: No
  Sender: IPSEN BIOPHARMACEUTICALS, INC.
  Company Number: US-IPSEN Group, Research and Development-2024-19871

PATIENT
  Age: 56 Year
  Sex: Female
  Weight: 65.31 kg

DRUGS (1)
  1. SOMATULINE DEPOT [Suspect]
     Active Substance: LANREOTIDE ACETATE
     Indication: Gastroenteropancreatic neuroendocrine tumour disease
     Dosage: BUTTOCKS, DEEP SC
     Route: 058
     Dates: start: 202312

REACTIONS (9)
  - Faeces discoloured [Recovered/Resolved]
  - Urinary tract infection [Recovered/Resolved]
  - Asthenia [Unknown]
  - Gastrointestinal disorder [Unknown]
  - Steatorrhoea [Unknown]
  - Feeling abnormal [Unknown]
  - Injection site nodule [Unknown]
  - Wrong technique in product usage process [Unknown]
  - Product packaging quantity issue [Unknown]

NARRATIVE: CASE EVENT DATE: 20231201
